FAERS Safety Report 9628675 (Version 1)
Quarter: 2013Q4

REPORT INFORMATION
  Report Type: Spontaneous
  Country: US (occurrence: US)
  Receive Date: 20131017
  Receipt Date: 20131017
  Transmission Date: 20140711
  Serious: Yes (Other)
  Sender: FDA-Public Use
  Company Number: US-BAYER-2013-123433

PATIENT
  Age: 40 Year
  Sex: Female

DRUGS (3)
  1. MIRENA [Suspect]
     Indication: CONTRACEPTION
     Dosage: 20 MCG/24HR, CONT
     Route: 015
     Dates: start: 20131004
  2. MIRENA [Suspect]
     Indication: MENORRHAGIA
  3. DOXYCYCLINE [Concomitant]
     Indication: ENDOMETRITIS

REACTIONS (2)
  - Medication error [None]
  - Post procedural haemorrhage [Recovered/Resolved]
